FAERS Safety Report 18704312 (Version 3)
Quarter: 2021Q1

REPORT INFORMATION
  Report Type: Report from Study
  Country: FR (occurrence: FR)
  Receive Date: 20210106
  Receipt Date: 20210311
  Transmission Date: 20210419
  Serious: Yes (Hospitalization)
  Sender: FDA-Public Use
  Company Number: FR-ROCHE-2743503

PATIENT
  Age: 61 Year
  Sex: Female
  Weight: 54 kg

DRUGS (7)
  1. LEVOTHYROX [Concomitant]
     Active Substance: LEVOTHYROXINE
     Indication: HYPOTHYROIDISM
     Route: 048
  2. BEVACIZUMAB. [Suspect]
     Active Substance: BEVACIZUMAB
     Indication: CERVIX CANCER METASTATIC
     Dosage: DATE OF LAST DOSE ADDMINISTERED: 08/DEC/2020
     Route: 042
     Dates: start: 20200929
  3. CARBOPLATIN. [Suspect]
     Active Substance: CARBOPLATIN
     Indication: CERVIX CANCER METASTATIC
     Dosage: ON 08/DEC/2020, SHE RECEIVED THE MOST RECENT DOSE OF CARBOPLATIN.
     Route: 042
     Dates: start: 20200929
  4. ATEZOLIZUMAB. [Suspect]
     Active Substance: ATEZOLIZUMAB
     Indication: CERVIX CANCER METASTATIC
     Dosage: DATE OF LAST DOSE ADDMINISTERED: 20/OCT/2020
     Route: 042
     Dates: start: 20200929
  5. PACLITAXEL. [Suspect]
     Active Substance: PACLITAXEL
     Indication: CERVIX CANCER METASTATIC
     Dosage: DATE OF LAST DOSE ADDMINISTERED: 08/DEC/2020
     Route: 042
     Dates: start: 20200929
  6. AMLODIPINE [Concomitant]
     Active Substance: AMLODIPINE BESYLATE
     Indication: HYPERTENSION
     Route: 048
     Dates: start: 20201013
  7. ARANESP [Concomitant]
     Active Substance: DARBEPOETIN ALFA
     Route: 058
     Dates: start: 20201201

REACTIONS (1)
  - Proctitis [Not Recovered/Not Resolved]

NARRATIVE: CASE EVENT DATE: 20201030
